FAERS Safety Report 8198453-9 (Version None)
Quarter: 2012Q1

REPORT INFORMATION
  Report Type: 
  Country: None (occurrence: None)
  Receive Date: 20120309
  Receipt Date: 20111213
  Transmission Date: 20120608
  Serious: No
  Sender: FDA-Public Use
  Company Number: US-AMGEN-USASP2011066553

PATIENT
  Age: 81 Year
  Sex: Female

DRUGS (9)
  1. CHLORPHENIRAMINE MALEATE [Concomitant]
     Dosage: UNK
  2. PROLIA [Suspect]
     Indication: OSTEOPOROSIS POSTMENOPAUSAL
     Dosage: 60 MG, Q6MO
     Dates: start: 20121208
  3. ESTROGEN [Concomitant]
     Dosage: UNK, QD
  4. LEVOXYL [Concomitant]
     Dosage: 1 UNK, QD
  5. PROPRANOLOL [Concomitant]
     Dosage: UNK, QD
  6. LISINOPRIL [Concomitant]
     Dosage: UNK, QD
  7. EQUATE [Concomitant]
     Dosage: 1 UNK, UNK
  8. BACTRIM [Concomitant]
     Dosage: 1 UNK, QD
  9. PEPCID [Concomitant]
     Dosage: UNK

REACTIONS (2)
  - GENERAL PHYSICAL HEALTH DETERIORATION [None]
  - ASTHENIA [None]
